FAERS Safety Report 6658197-9 (Version None)
Quarter: 2010Q1

REPORT INFORMATION
  Report Type: 
  Country: None (occurrence: None)
  Receive Date: 20100330
  Receipt Date: 20100323
  Transmission Date: 20100710
  Serious: Yes (Other)
  Sender: FDA-Public Use
  Company Number: US-MERCK-0905USA00173

PATIENT
  Age: 74 Year
  Sex: Female

DRUGS (4)
  1. FOSAMAX [Suspect]
     Indication: OSTEOPOROSIS
     Route: 048
     Dates: start: 20050601, end: 20070601
  2. NEXIUM [Concomitant]
     Indication: GASTROOESOPHAGEAL REFLUX DISEASE
     Route: 065
     Dates: start: 19970101
  3. FOSAMAX PLUS D [Suspect]
     Indication: OSTEOPOROSIS
     Route: 048
     Dates: start: 20060816
  4. FOSAMAX [Suspect]
     Route: 048
     Dates: start: 20020401

REACTIONS (18)
  - ABSCESS [None]
  - BONE SWELLING [None]
  - CANDIDIASIS [None]
  - DENTAL CARIES [None]
  - DRY MOUTH [None]
  - DYSPHAGIA [None]
  - NERVE INJURY [None]
  - ORAL DISORDER [None]
  - ORAL INFECTION [None]
  - ORAL TORUS [None]
  - OSTEOMYELITIS CHRONIC [None]
  - OSTEONECROSIS [None]
  - OSTEORADIONECROSIS [None]
  - PHARYNGITIS STREPTOCOCCAL [None]
  - RESORPTION BONE INCREASED [None]
  - STOMATITIS [None]
  - SWELLING [None]
  - TONSIL CANCER [None]
